FAERS Safety Report 13456814 (Version 2)
Quarter: 2017Q2

REPORT INFORMATION
  Report Type: Other
  Country: FR (occurrence: FR)
  Receive Date: 20170419
  Receipt Date: 20170608
  Transmission Date: 20170830
  Serious: Yes (Hospitalization, Other)
  Sender: FDA-Public Use
  Company Number: FR-ASTELLAS-2017US014599

PATIENT
  Age: 64 Year
  Sex: Female

DRUGS (9)
  1. PROGRAF [Suspect]
     Active Substance: TACROLIMUS\TACROLIMUS ANHYDROUS
     Route: 048
  2. PROGRAF [Suspect]
     Active Substance: TACROLIMUS\TACROLIMUS ANHYDROUS
     Route: 048
     Dates: start: 20170111, end: 20170113
  3. BACTRIM [Suspect]
     Active Substance: SULFAMETHOXAZOLE\TRIMETHOPRIM
     Indication: PRODUCT USED FOR UNKNOWN INDICATION
     Route: 048
     Dates: start: 20160628, end: 201704
  4. PROGRAF [Suspect]
     Active Substance: TACROLIMUS\TACROLIMUS ANHYDROUS
     Route: 048
     Dates: start: 20170113, end: 20170116
  5. PROGRAF [Suspect]
     Active Substance: TACROLIMUS\TACROLIMUS ANHYDROUS
     Indication: HEART TRANSPLANT
     Dosage: UNK UNK, UNKNOWN FREQ.
     Route: 048
     Dates: start: 20160905
  6. PROGRAF [Suspect]
     Active Substance: TACROLIMUS\TACROLIMUS ANHYDROUS
     Route: 048
     Dates: start: 20161102, end: 20170106
  7. PROGRAF [Suspect]
     Active Substance: TACROLIMUS\TACROLIMUS ANHYDROUS
     Route: 048
     Dates: start: 20170106, end: 20170111
  8. PROGRAF [Suspect]
     Active Substance: TACROLIMUS\TACROLIMUS ANHYDROUS
     Dosage: 0.5 MG, TWICE DAILY
     Route: 048
     Dates: start: 20170116, end: 20170126
  9. CERTICAN [Suspect]
     Active Substance: EVEROLIMUS
     Indication: HEART TRANSPLANT
     Dosage: UNK UNK, UNKNOWN FREQ.
     Route: 048
     Dates: start: 20170126

REACTIONS (6)
  - Cerebrovascular disorder [Unknown]
  - Renal impairment [Recovered/Resolved]
  - Bronchopulmonary aspergillosis [Unknown]
  - Overdose [Unknown]
  - Haemolytic anaemia [Recovered/Resolved]
  - Thrombotic microangiopathy [Recovering/Resolving]

NARRATIVE: CASE EVENT DATE: 201701
